FAERS Safety Report 15254834 (Version 5)
Quarter: 2022Q1

REPORT INFORMATION
  Report Type: Spontaneous
  Country: DE (occurrence: DE)
  Receive Date: 20180808
  Receipt Date: 20220314
  Transmission Date: 20220423
  Serious: Yes (Life-Threatening, Hospitalization, Other)
  Sender: FDA-Public Use
  Company Number: DE-MYLANLABS-2018M1059793

PATIENT
  Age: 74 Year
  Sex: Male
  Weight: 81 kg

DRUGS (16)
  1. EPINEPHRINE [Interacting]
     Active Substance: EPINEPHRINE
     Indication: Blood pressure decreased
     Dosage: 5 MICROGRAM, (SMALL DOSES, BOLUSES)
     Route: 042
  2. EPINEPHRINE [Interacting]
     Active Substance: EPINEPHRINE
     Dosage: 5 MICROGRAM, (SMALL DOSES, BOLUSES)
     Route: 040
  3. REMIFENTANIL [Interacting]
     Active Substance: REMIFENTANIL
     Indication: Product used for unknown indication
     Dosage: 0.35 MICROGRAM/KILOGRAM, QMINUTE
     Route: 050
  4. REMIFENTANIL [Interacting]
     Active Substance: REMIFENTANIL
     Dosage: 0.15 MICROGRAM/KILOGRAM, QMINUTE
     Route: 050
  5. ROCURONIUM [Interacting]
     Active Substance: ROCURONIUM BROMIDE
     Indication: Neuromuscular blocking therapy
     Dosage: 50 MILLIGRAM, ONCE (SINGLE DOSE)
     Route: 042
  6. ROCURONIUM [Interacting]
     Active Substance: ROCURONIUM BROMIDE
     Indication: Neuromuscular blockade
  7. ATROPINE [Suspect]
     Active Substance: ATROPINE
     Indication: Bradycardia
     Dosage: 0.8 MILLIGRAM, TOTAL
     Route: 065
  8. ATROPINE [Suspect]
     Active Substance: ATROPINE
     Indication: Hypotension
  9. ATROPINE [Suspect]
     Active Substance: ATROPINE
     Indication: Heart rate decreased
  10. TAMSULOSIN [Suspect]
     Active Substance: TAMSULOSIN
     Indication: Benign prostatic hyperplasia
     Dosage: UNK
     Route: 065
  11. NITROUS OXIDE [Concomitant]
     Active Substance: NITROUS OXIDE
     Indication: Anaesthesia
     Dosage: UNK
  12. FENTANYL [Concomitant]
     Active Substance: FENTANYL
     Indication: Anaesthesia
     Dosage: 0.2 MICROGRAM/KILOGRAM
     Route: 042
  13. CLORAZEPATE DIPOTASSIUM [Concomitant]
     Active Substance: CLORAZEPATE DIPOTASSIUM
     Indication: Premedication
     Dosage: 20 MILLIGRAM
     Route: 048
  14. PROPOFOL [Concomitant]
     Active Substance: PROPOFOL
     Indication: Anaesthesia
     Dosage: 1.5 MILLIGRAM/KILOGRAM
     Route: 042
  15. PROPOFOL [Concomitant]
     Active Substance: PROPOFOL
     Dosage: 1.5 MILLIGRAM/KILOGRAM
     Route: 041
  16. OXYGEN [Concomitant]
     Active Substance: OXYGEN
     Indication: Product used for unknown indication
     Dosage: UNK
     Route: 065

REACTIONS (5)
  - Hypotension [Recovering/Resolving]
  - Bradycardia [Recovering/Resolving]
  - Neuromuscular block prolonged [Recovered/Resolved]
  - Drug interaction [Recovered/Resolved]
  - Drug ineffective [Unknown]
